FAERS Safety Report 6979621-8 (Version None)
Quarter: 2010Q3

REPORT INFORMATION
  Report Type: 
  Country: None (occurrence: None)
  Receive Date: 20100910
  Receipt Date: 20100910
  Transmission Date: 20110219
  Serious: Yes (Life-Threatening)
  Sender: FDA-Public Use
  Company Number: None

PATIENT
  Age: 47 Year
  Sex: Female
  Weight: 92.5338 kg

DRUGS (10)
  1. LUVOX [Suspect]
     Indication: DYSTHYMIC DISORDER
     Dosage: 200 TOTAL -HALF OF 100MG CAP DAILY PO
     Route: 048
     Dates: start: 20100411, end: 20100828
  2. LUVOX [Suspect]
     Indication: ANXIETY
  3. FIORICET [Concomitant]
  4. BYSTOLIC [Concomitant]
  5. VIT D [Concomitant]
  6. FISH OIL [Concomitant]
  7. ZYTEC [Concomitant]
  8. CLARITIN [Concomitant]
  9. ATIVAN [Concomitant]
  10. MELATONIN [Concomitant]

REACTIONS (7)
  - ANGER [None]
  - BIPOLAR DISORDER [None]
  - DISTURBANCE IN ATTENTION [None]
  - HOSTILITY [None]
  - IRRITABILITY [None]
  - MENTAL STATUS CHANGES [None]
  - MORBID THOUGHTS [None]
